FAERS Safety Report 9164403 (Version 1)
Quarter: 2013Q1

REPORT INFORMATION
  Report Type: Spontaneous
  Country: DK (occurrence: None)
  Receive Date: 20130226
  Receipt Date: 20130226
  Transmission Date: 20140127
  Serious: No
  Sender: FDA-Public Use
  Company Number: 2013MA001315

PATIENT
  Age: 67 Year
  Sex: Female

DRUGS (3)
  1. DOXYCYCLINE HYCLATE DELAYED-RELEASE TABLETS USP [Suspect]
     Dates: start: 20130122
  2. TIOTROPIUM [Suspect]
     Route: 055
     Dates: start: 20110816, end: 20130124
  3. IBUPROFEN ORAL SUSPENSION USP, 100 MG/5 ML (RX) (ALPHARMA) (IBUPROFEN) [Suspect]
     Dates: start: 20130111

REACTIONS (2)
  - International normalised ratio increased [None]
  - Subdural haematoma [None]
